FAERS Safety Report 24292117 (Version 1)
Quarter: 2024Q3

REPORT INFORMATION
  Report Type: Spontaneous
  Country: US (occurrence: None)
  Receive Date: 20240906
  Receipt Date: 20240906
  Transmission Date: 20241017
  Serious: No
  Sender: DOMPE FARMACEUTICI
  Company Number: US-FARMAPROD-202307-2159

PATIENT
  Sex: Female
  Weight: 75.93 kg

DRUGS (21)
  1. OXERVATE [Suspect]
     Active Substance: CENEGERMIN-BKBJ
     Indication: Neurotrophic keratopathy
     Route: 047
     Dates: start: 20230622
  2. OXERVATE [Suspect]
     Active Substance: CENEGERMIN-BKBJ
  3. MULTIVITAMIN 50+ [Concomitant]
  4. PROBIOTICS NOS [Concomitant]
     Active Substance: PROBIOTICS NOS
     Dosage: 10 BILION CELL
  5. ESCITALOPRAM OXALATE [Concomitant]
     Active Substance: ESCITALOPRAM OXALATE
  6. VITAMIN D3 [Concomitant]
     Active Substance: CHOLECALCIFEROL
     Dosage: 100000/G
  7. SYMBICORT [Concomitant]
     Active Substance: BUDESONIDE\FORMOTEROL FUMARATE DIHYDRATE
     Dosage: 60-4.5MCG HYDROFLUOROALKANE AEROSOL WITH ADAPTER
  8. VITAMIN C [Concomitant]
     Active Substance: ASCORBIC ACID
  9. TRAZODONE HCL [Concomitant]
     Active Substance: TRAZODONE HYDROCHLORIDE
  10. PREDNISONE [Concomitant]
     Active Substance: PREDNISONE
  11. HYDROXYZINE HYDROCHLORIDE [Concomitant]
     Active Substance: HYDROXYZINE HYDROCHLORIDE
  12. PANTOPRAZOLE SODIUM [Concomitant]
     Active Substance: PANTOPRAZOLE SODIUM
  13. METOLAZONE [Concomitant]
     Active Substance: METOLAZONE
  14. BUDESONIDE-FORMOTEROL FUMARATE [Concomitant]
  15. ELIQUIS [Concomitant]
     Active Substance: APIXABAN
  16. PILOCARPINE HYDROCHLORIDE [Concomitant]
     Active Substance: PILOCARPINE HYDROCHLORIDE
  17. LEVOTHYROXINE SODIUM [Concomitant]
     Active Substance: LEVOTHYROXINE SODIUM
  18. ACETAMINOPHEN\HYDROCODONE [Concomitant]
     Active Substance: ACETAMINOPHEN\HYDROCODONE
  19. POTASSIUM CHLORIDE [Concomitant]
     Active Substance: POTASSIUM CHLORIDE
  20. BUMETANIDE [Concomitant]
     Active Substance: BUMETANIDE
  21. BOTOX [Concomitant]
     Active Substance: ONABOTULINUMTOXINA

REACTIONS (2)
  - Eye pain [Unknown]
  - Dry eye [Unknown]
